FAERS Safety Report 19885089 (Version 1)
Quarter: 2021Q3

REPORT INFORMATION
  Report Type: Spontaneous
  Country: US (occurrence: US)
  Receive Date: 20210927
  Receipt Date: 20210927
  Transmission Date: 20211014
  Serious: No
  Sender: FDA-Public Use
  Company Number: US-AMGEN-USASP2021144920

PATIENT
  Age: 81 Year
  Sex: Male

DRUGS (3)
  1. XGEVA [Suspect]
     Active Substance: DENOSUMAB
     Indication: PROSTATE CANCER
  2. XGEVA [Suspect]
     Active Substance: DENOSUMAB
     Indication: METASTASES TO BONE
     Dosage: 120 MILLIGRAM
     Route: 065
     Dates: start: 20170505
  3. ELIGARD [Concomitant]
     Active Substance: LEUPROLIDE ACETATE
     Dosage: 45 MILLIGRAM, Q6MO
     Dates: start: 20201105

REACTIONS (2)
  - Tooth extraction [Not Recovered/Not Resolved]
  - Blood pressure abnormal [Unknown]

NARRATIVE: CASE EVENT DATE: 20210916
